FAERS Safety Report 6326373-0 (Version None)
Quarter: 2009Q3

REPORT INFORMATION
  Report Type: 
  Country: None (occurrence: None)
  Receive Date: 20090818
  Receipt Date: 20090429
  Transmission Date: 20100115
  Serious: No
  Sender: FDA-Public Use
  Company Number: WAES 0904USA04474

PATIENT
  Age: 68 Year
  Sex: Female
  Weight: 77.1115 kg

DRUGS (8)
  1. JANUVIA [Suspect]
     Indication: DIABETES MELLITUS
     Dosage: 100 MG/DAILY/PO
     Route: 048
     Dates: start: 20080101
  2. PRINIVIL [Concomitant]
  3. AMLODIPINE [Concomitant]
  4. ATENOLOL [Concomitant]
  5. DOXAZOSIN MESYLATE [Concomitant]
  6. GABAPENTIN [Concomitant]
  7. GLIPIZIDE [Concomitant]
  8. METFORMIN HCL [Concomitant]

REACTIONS (3)
  - ADVERSE EVENT [None]
  - OROPHARYNGEAL PAIN [None]
  - RHINORRHOEA [None]
